FAERS Safety Report 9711604 (Version 1)
Quarter: 2013Q4

REPORT INFORMATION
  Report Type: Spontaneous
  Country: US (occurrence: None)
  Receive Date: 20131125
  Receipt Date: 20131125
  Transmission Date: 20140711
  Serious: Yes (Life-Threatening)
  Sender: FDA-Public Use
  Company Number: None

PATIENT
  Age: 24 Year
  Sex: Female
  Weight: 49.9 kg

DRUGS (1)
  1. TEGRETOL [Suspect]
     Indication: AFFECTIVE DISORDER
     Route: 048

REACTIONS (2)
  - Rash [None]
  - Acne [None]
